FAERS Safety Report 7968735-1 (Version None)
Quarter: 2011Q4

REPORT INFORMATION
  Report Type: 
  Country: None (occurrence: None)
  Receive Date: 20111209
  Receipt Date: 20111128
  Transmission Date: 20120403
  Serious: Yes (Hospitalization)
  Sender: FDA-Public Use
  Company Number: US-BAYER-2011-048034

PATIENT
  Age: 41 Year
  Sex: Female
  Weight: 104.31 kg

DRUGS (4)
  1. YAZ [Suspect]
     Indication: VAGINAL HAEMORRHAGE
  2. NEXIUM [Concomitant]
     Indication: GASTROOESOPHAGEAL REFLUX DISEASE
     Dosage: 40 MG, UNK
     Route: 048
     Dates: start: 20030101
  3. YAZ [Suspect]
     Indication: CONTRACEPTION
     Dosage: UNK
     Dates: start: 20070801, end: 20090501
  4. YAZ [Suspect]
     Indication: PREMENSTRUAL SYNDROME

REACTIONS (8)
  - PULMONARY EMBOLISM [None]
  - ANHEDONIA [None]
  - ANXIETY [None]
  - MENTAL DISORDER [None]
  - CHEST PAIN [None]
  - PAIN [None]
  - INJURY [None]
  - DYSPNOEA [None]
